FAERS Safety Report 18953893 (Version 1)
Quarter: 2021Q1

REPORT INFORMATION
  Report Type: Spontaneous
  Country: US (occurrence: US)
  Receive Date: 20210301
  Receipt Date: 20210301
  Transmission Date: 20210420
  Serious: Yes (Other)
  Sender: FDA-Public Use
  Company Number: US-GLAXOSMITHKLINE-US2021GSK050133

PATIENT
  Sex: Male

DRUGS (4)
  1. RANITIDINE. [Suspect]
     Active Substance: RANITIDINE
     Indication: STEROID THERAPY
     Dosage: UNKNOWN AT THIS TIME, QD
     Route: 065
     Dates: start: 201404, end: 201611
  2. RANITIDINE. [Suspect]
     Active Substance: RANITIDINE
     Indication: STEROID THERAPY
     Dosage: UNKNOWN AT THIS TIME, QD
     Route: 065
     Dates: start: 201404, end: 201611
  3. ZANTAC [Suspect]
     Active Substance: RANITIDINE HYDROCHLORIDE
     Indication: STEROID THERAPY
     Dosage: 25 MG, QD
     Route: 065
     Dates: start: 200604, end: 201411
  4. ZANTAC [Suspect]
     Active Substance: RANITIDINE HYDROCHLORIDE
     Indication: STEROID THERAPY
     Dosage: 25 MG, QD
     Route: 065
     Dates: start: 200604, end: 201411

REACTIONS (1)
  - Renal cancer [Unknown]
